FAERS Safety Report 8543089-0 (Version None)
Quarter: 2012Q3

REPORT INFORMATION
  Report Type: 
  Country: None (occurrence: None)
  Receive Date: 20120727
  Receipt Date: 20110927
  Transmission Date: 20120928
  Serious: No
  Sender: FDA-Public Use
  Company Number: US-MYLANLABS-2011S1016306

PATIENT
  Age: 77 Year
  Sex: Female
  Weight: 76.66 kg

DRUGS (1)
  1. LEVOTHYROXINE SODIUM [Suspect]
     Indication: HYPOTHYROIDISM
     Route: 048
     Dates: start: 20100101, end: 20110101

REACTIONS (7)
  - ARTHRALGIA [None]
  - MYALGIA [None]
  - MUSCLE SPASMS [None]
  - HEADACHE [None]
  - GAIT DISTURBANCE [None]
  - DYSPNOEA [None]
  - VISION BLURRED [None]
